FAERS Safety Report 25954928 (Version 1)
Quarter: 2025Q4

REPORT INFORMATION
  Report Type: Other
  Country: AU (occurrence: AU)
  Receive Date: 20251024
  Receipt Date: 20251024
  Transmission Date: 20260117
  Serious: Yes (Other)
  Sender: Atnahs Healthcare
  Company Number: AU-ATNAHS-2025-PMNV-AU001452

PATIENT

DRUGS (2)
  1. DIAZEPAM [Suspect]
     Active Substance: DIAZEPAM
     Indication: Product used for unknown indication
     Dosage: UNK
  2. CODEINE [Suspect]
     Active Substance: CODEINE
     Indication: Product used for unknown indication
     Dosage: UNK

REACTIONS (7)
  - Visceral congestion [Unknown]
  - Mitral valve thickening [Unknown]
  - Toxicity to various agents [Unknown]
  - Granuloma [Unknown]
  - Emphysema [Unknown]
  - Coronary artery disease [Unknown]
  - Adhesion [Unknown]
